FAERS Safety Report 8525188-2 (Version None)
Quarter: 2012Q3

REPORT INFORMATION
  Report Type: 
  Country: None (occurrence: None)
  Receive Date: 20120720
  Receipt Date: 20120712
  Transmission Date: 20120928
  Serious: Yes (Other)
  Sender: FDA-Public Use
  Company Number: PHHY2011CA101684

PATIENT
  Sex: Female

DRUGS (1)
  1. GILENYA [Suspect]
     Indication: RELAPSING-REMITTING MULTIPLE SCLEROSIS
     Dosage: 0.5 MG, QD
     Route: 048
     Dates: start: 20111115

REACTIONS (13)
  - VERTIGO [None]
  - BLOOD PRESSURE INCREASED [None]
  - ABDOMINAL PAIN UPPER [None]
  - DYSPEPSIA [None]
  - VISION BLURRED [None]
  - INSOMNIA [None]
  - FATIGUE [None]
  - HEADACHE [None]
  - DIZZINESS [None]
  - PALPITATIONS [None]
  - MIGRAINE [None]
  - CARDIAC MURMUR [None]
  - CHEST PAIN [None]
